FAERS Safety Report 15455807 (Version 5)
Quarter: 2019Q1

REPORT INFORMATION
  Report Type: Report from Study
  Country: ZA (occurrence: ZA)
  Receive Date: 20181002
  Receipt Date: 20190123
  Transmission Date: 20190417
  Serious: Yes (Hospitalization)
  Sender: FDA-Public Use
  Company Number: ZA-SA-2018SA270299

PATIENT
  Age: 63 Year
  Sex: Female

DRUGS (8)
  1. ECOTRIN [Concomitant]
     Active Substance: ASPIRIN
     Dosage: UNK UNK, UNK
     Dates: start: 20180101
  2. INSULIN GLULISINE [Suspect]
     Active Substance: INSULIN GLULISINE
     Indication: TYPE 2 DIABETES MELLITUS
     Dosage: 8 (UNIT UNKNOWN), TID BEFORE BREAKFAST, BEFORE LUNCH AND BEFORE SUPPER
     Dates: start: 20180719
  3. OPTISULIN (INSULIN GLARGINE) [Suspect]
     Active Substance: INSULIN GLARGINE
     Dosage: 32 (UNIT UNKNOWN), QD
     Dates: start: 20180725
  4. MENGEN [Concomitant]
     Active Substance: METFORMIN HYDROCHLORIDE
     Dosage: UNK UNK, UNK
     Route: 065
     Dates: start: 20180101
  5. LESTAVOR [Concomitant]
     Active Substance: ATORVASTATIN CALCIUM
     Dosage: UNK UNK, UNK
     Dates: start: 20180101
  6. OPTISULIN (INSULIN GLARGINE) [Suspect]
     Active Substance: INSULIN GLARGINE
     Indication: TYPE 2 DIABETES MELLITUS
     Dosage: 36 U, QD HS
     Dates: start: 20180614, end: 20180828
  7. ACCUMAX CO [Concomitant]
     Active Substance: HYDROCHLOROTHIAZIDE\QUINAPRIL HYDROCHLORIDE
     Dosage: UNK UNK, UNK
     Dates: start: 20180101
  8. INSULIN GLULISINE [Suspect]
     Active Substance: INSULIN GLULISINE
     Dosage: 8 (UNIT UNKNOWN), TID
     Dates: start: 20180725

REACTIONS (5)
  - Loss of consciousness [Recovered/Resolved]
  - Unevaluable event [Not Recovered/Not Resolved]
  - Peripheral swelling [Not Recovered/Not Resolved]
  - Blood disorder [Not Recovered/Not Resolved]
  - Dizziness [Not Recovered/Not Resolved]

NARRATIVE: CASE EVENT DATE: 20180828
